FAERS Safety Report 17392872 (Version 1)
Quarter: 2020Q1

REPORT INFORMATION
  Report Type: Spontaneous
  Country: US (occurrence: US)
  Receive Date: 20200207
  Receipt Date: 20200207
  Transmission Date: 20200409
  Serious: No
  Sender: FDA-Public Use
  Company Number: US-SA-2020SA029855

PATIENT
  Age: 24 Year
  Sex: Female

DRUGS (7)
  1. DUPIXENT [Suspect]
     Active Substance: DUPILUMAB
     Indication: UNEVALUABLE EVENT
     Dosage: 600 MG, 1X
     Route: 058
     Dates: start: 20200122, end: 20200122
  2. PREDNISONE. [Concomitant]
     Active Substance: PREDNISONE
  3. CYCLOBENZAPRINE HYDROCHLORIDE. [Concomitant]
     Active Substance: CYCLOBENZAPRINE HYDROCHLORIDE
  4. NAPROXEN. [Concomitant]
     Active Substance: NAPROXEN
  5. ELIDEL [Concomitant]
     Active Substance: PIMECROLIMUS
  6. DUPIXENT [Suspect]
     Active Substance: DUPILUMAB
     Dosage: 300 MG, QOW
     Route: 058
     Dates: start: 202001
  7. PIMECROLIMUS. [Concomitant]
     Active Substance: PIMECROLIMUS

REACTIONS (2)
  - Wrong technique in product usage process [Unknown]
  - Injection site pain [Unknown]

NARRATIVE: CASE EVENT DATE: 20200122
